FAERS Safety Report 4662207-8 (Version None)
Quarter: 2005Q2

REPORT INFORMATION
  Report Type: 
  Country: None (occurrence: None)
  Receive Date: 20050512
  Receipt Date: 20050427
  Transmission Date: 20051028
  Serious: Yes (Hospitalization)
  Sender: FDA-Public Use
  Company Number: 2005BI006906

PATIENT
  Age: 46 Year
  Sex: Female
  Weight: 76.2043 kg

DRUGS (13)
  1. AVONEX [Suspect]
     Indication: MULTIPLE SCLEROSIS
     Dosage: 30 UG; QW; IM
     Route: 030
     Dates: start: 20000101, end: 20041001
  2. AVONEX [Suspect]
     Indication: MULTIPLE SCLEROSIS
     Dosage: 30 UG; QW; IM
     Route: 030
     Dates: start: 20041001, end: 20041001
  3. AVONEX [Suspect]
     Indication: MULTIPLE SCLEROSIS
     Dosage: 30 UG; QW; IM
     Route: 030
     Dates: start: 20041001
  4. BACLOFEN [Concomitant]
  5. CYCLOBENZAPRINE HCL [Concomitant]
  6. FEMHRT [Concomitant]
  7. DYAZIDE [Concomitant]
  8. SYNTHROID [Concomitant]
  9. M.V.I. [Concomitant]
  10. TRAZODONE [Concomitant]
  11. ALEVE [Concomitant]
  12. BEXTRA [Concomitant]
  13. POTASSIUM CHLORIDE [Concomitant]

REACTIONS (1)
  - ARTHRITIS [None]
